FAERS Safety Report 24328579 (Version 4)
Quarter: 2025Q1

REPORT INFORMATION
  Report Type: Report from Study
  Country: KR (occurrence: KR)
  Receive Date: 20240917
  Receipt Date: 20250109
  Transmission Date: 20250408
  Serious: Yes (Other)
  Sender: JOHNSON AND JOHNSON
  Company Number: KR-JNJFOC-20240239870

PATIENT
  Age: 81 Year
  Sex: Female
  Weight: 43 kg

DRUGS (2)
  1. LAZERTINIB [Suspect]
     Active Substance: LAZERTINIB
     Indication: Non-small cell lung cancer
     Route: 048
     Dates: start: 20231017, end: 20231017
  2. LAZERTINIB [Suspect]
     Active Substance: LAZERTINIB
     Dosage: MOST RECENT DOSE ADMINISTERED ON 16-JAN-2024
     Route: 048
     Dates: start: 20231018, end: 20240116

REACTIONS (5)
  - Hepatitis [Recovered/Resolved]
  - Rash [Recovered/Resolved]
  - Pruritus [Recovered/Resolved]
  - Peripheral sensory neuropathy [Recovering/Resolving]
  - Eye pain [Recovering/Resolving]

NARRATIVE: CASE EVENT DATE: 20231021
